FAERS Safety Report 5895393-2 (Version None)
Quarter: 2008Q3

REPORT INFORMATION
  Report Type: 
  Country: None (occurrence: None)
  Receive Date: 20080924
  Receipt Date: 20080919
  Transmission Date: 20090109
  Serious: Yes (Death)
  Sender: FDA-Public Use
  Company Number: CA-NOVOPROD-279680

PATIENT
  Sex: Female

DRUGS (1)
  1. NIASTASE [Suspect]
     Indication: POSTPARTUM HAEMORRHAGE

REACTIONS (1)
  - DEATH [None]
